FAERS Safety Report 4861137-6 (Version None)
Quarter: 2005Q4

REPORT INFORMATION
  Report Type: 
  Country: None (occurrence: None)
  Receive Date: 20051216
  Receipt Date: 20051207
  Transmission Date: 20060501
  Serious: Yes (Disabling)
  Sender: FDA-Public Use
  Company Number: 167-20785-05100215

PATIENT
  Age: 58 Year
  Sex: Female

DRUGS (3)
  1. THALIDOMIDE - PHARMION (THALIDOMIDE) (CAPSULES) [Suspect]
     Indication: MULTIPLE MYELOMA
     Dosage: 50 MG, EVERY 2 DAYS, ORAL;  50 MG, DAILY, ORAL;   ORAL
     Route: 048
     Dates: start: 20040101, end: 20050101
  2. THALIDOMIDE - PHARMION (THALIDOMIDE) (CAPSULES) [Suspect]
     Indication: MULTIPLE MYELOMA
     Dosage: 50 MG, EVERY 2 DAYS, ORAL;  50 MG, DAILY, ORAL;   ORAL
     Route: 048
     Dates: start: 20050101, end: 20050101
  3. THALIDOMIDE - PHARMION (THALIDOMIDE) (CAPSULES) [Suspect]
     Indication: MULTIPLE MYELOMA
     Dosage: 50 MG, EVERY 2 DAYS, ORAL;  50 MG, DAILY, ORAL;   ORAL
     Route: 048
     Dates: start: 20050101

REACTIONS (2)
  - TREMOR [None]
  - VISION BLURRED [None]
